FAERS Safety Report 8811921 (Version 2)
Quarter: 2012Q4

REPORT INFORMATION
  Report Type: 
  Country: US (occurrence: US)
  Receive Date: 20120927
  Receipt Date: 20121031
  Transmission Date: 20130627
  Serious: Yes (Hospitalization)
  Sender: FDA-Public Use
  Company Number: US-JNJFOC-20120910405

PATIENT
  Age: 5 Year
  Sex: Female
  Weight: 16.78 kg

DRUGS (1)
  1. CHILDREN^S TYLENOL BUBBLEGUM BURST [Suspect]
     Indication: PYREXIA
     Dosage: 3 tablets at a time, 10 in a day
     Route: 048
     Dates: start: 20110217, end: 20110219

REACTIONS (3)
  - Drug ineffective [Not Recovered/Not Resolved]
  - Product physical issue [Unknown]
  - Product packaging issue [Unknown]
